FAERS Safety Report 8397104-8 (Version None)
Quarter: 2012Q2

REPORT INFORMATION
  Report Type: 
  Country: None (occurrence: None)
  Receive Date: 20120530
  Receipt Date: 20120521
  Transmission Date: 20120825
  Serious: Yes (Hospitalization, Other)
  Sender: FDA-Public Use
  Company Number: US-ABBOTT-12P-163-0936967-00

PATIENT
  Age: 64 Year
  Sex: Female
  Weight: 61.063 kg

DRUGS (7)
  1. ERLOTINIB HYDROCHLORIDE [Suspect]
     Indication: PAIN
  2. FENTANYL-100 [Concomitant]
     Indication: PAIN
     Dates: end: 20120301
  3. MIRALAX [Concomitant]
     Indication: CONSTIPATION
  4. EXCEDRIN (MIGRAINE) [Concomitant]
     Indication: PAIN
     Dates: end: 20120301
  5. COLACE [Concomitant]
     Indication: CONSTIPATION
     Dates: end: 20120301
  6. FOLIC ACID [Concomitant]
     Indication: PRODUCT USED FOR UNKNOWN INDICATION
     Dates: end: 20120301
  7. VICODIN [Suspect]
     Indication: PRODUCT USED FOR UNKNOWN INDICATION
     Route: 048
     Dates: end: 20120301

REACTIONS (3)
  - TROPONIN INCREASED [None]
  - CONSTIPATION [None]
  - PERICARDIAL EFFUSION [None]
